FAERS Safety Report 8848904 (Version 5)
Quarter: 2013Q3

REPORT INFORMATION
  Report Type: Report from Study
  Country: JP (occurrence: JP)
  Receive Date: 20121018
  Receipt Date: 20130726
  Transmission Date: 20140515
  Serious: Yes (Other)
  Sender: FDA-Public Use
  Company Number: JP-VERTEX PHARMACEUTICAL INC.-AE-2012-010454

PATIENT
  Age: 59 Year
  Sex: Male

DRUGS (17)
  1. VX-950 (TELAPREVIR) [Suspect]
     Indication: CHRONIC HEPATITIS C
     Dosage: 2250 MG, QD
     Route: 048
     Dates: start: 20120418, end: 20120517
  2. VX-950 (TELAPREVIR) [Suspect]
     Dosage: 2250 MG, QD
     Route: 048
     Dates: start: 20120525, end: 20120712
  3. RIBAVIRIN [Suspect]
     Indication: CHRONIC HEPATITIS C
     Dosage: 800 MG, QD
     Route: 048
     Dates: start: 20120418, end: 20120517
  4. RIBAVIRIN [Suspect]
     Dosage: 800 MG, QD
     Route: 048
     Dates: start: 20120525, end: 20120712
  5. RIBAVIRIN [Suspect]
     Dosage: 400 MG, QD
     Route: 048
     Dates: start: 20120807
  6. PEGINTERFERON ALFA-2B [Suspect]
     Indication: CHRONIC HEPATITIS C
     Dosage: 1.5 ?G/KG, QW
     Route: 058
     Dates: start: 20120418, end: 20120424
  7. PEGINTERFERON ALFA-2B [Suspect]
     Dosage: 0.75 ?G/KG, QW
     Route: 058
     Dates: start: 20120425, end: 20120430
  8. PEGINTERFERON ALFA-2B [Suspect]
     Dosage: 1.5 ?G/KG, QW
     Route: 058
     Dates: start: 20120501, end: 20120517
  9. PEGINTERFERON ALFA-2B [Suspect]
     Dosage: 1.5 ?G/KG, QW
     Route: 058
     Dates: start: 20120525, end: 20121023
  10. URSO [Concomitant]
     Dosage: 600 MG, QD
     Route: 048
  11. HIRUDOID [Concomitant]
     Dosage: UNK, QD
     Route: 051
  12. ALLEGRA [Concomitant]
     Dosage: 120 MG, QD
     Route: 048
  13. TALION [Concomitant]
     Dosage: 10 MG, QD
     Route: 048
     Dates: start: 20120418, end: 20120517
  14. OLMETEC [Concomitant]
     Dosage: 10 MG, QD
     Route: 048
     Dates: start: 20120423, end: 20120607
  15. ASTOMIN [Concomitant]
     Dosage: 60 MG, QD
     Route: 048
     Dates: start: 20120511, end: 20120517
  16. ADOAIR [Concomitant]
     Dosage: 500 ?G, QD
     Route: 055
     Dates: start: 20120518
  17. RINDERON-V [Concomitant]
     Dosage: UNK, PRN
     Route: 051

REACTIONS (1)
  - Hypokalaemia [Recovered/Resolved]
